FAERS Safety Report 16124102 (Version 1)
Quarter: 2019Q1

REPORT INFORMATION
  Report Type: Spontaneous
  Country: FR (occurrence: FR)
  Receive Date: 20190327
  Receipt Date: 20190327
  Transmission Date: 20190418
  Serious: Yes (Hospitalization)
  Sender: FDA-Public Use
  Company Number: FR-009507513-1903FRA009081

PATIENT
  Age: 56 Year
  Sex: Male
  Weight: 60 kg

DRUGS (4)
  1. INEXIUM (ESOMEPRAZOLE SODIUM) [Suspect]
     Active Substance: ESOMEPRAZOLE SODIUM
     Dosage: 80 MILLIGRAM
     Route: 042
     Dates: start: 20101005, end: 20101015
  2. ERYTHROMYCIN. [Suspect]
     Active Substance: ERYTHROMYCIN
     Indication: SEPTIC SHOCK
     Route: 042
     Dates: start: 20101005, end: 20101019
  3. IMIPENEM AND CILASTATIN [Suspect]
     Active Substance: CILASTATIN SODIUM\IMIPENEM
     Indication: SEPTIC SHOCK
     Dosage: 2000 MILLIGRAM
     Route: 042
     Dates: start: 20101005, end: 20101014
  4. VANCOMYCIN [Suspect]
     Active Substance: VANCOMYCIN
     Indication: SEPTIC SHOCK
     Dosage: 2 GRAM
     Route: 042
     Dates: start: 20101005, end: 20101014

REACTIONS (1)
  - Toxic skin eruption [Recovered/Resolved]

NARRATIVE: CASE EVENT DATE: 20101011
